FAERS Safety Report 10050499 (Version 1)
Quarter: 2014Q2

REPORT INFORMATION
  Report Type: Spontaneous
  Country: US (occurrence: US)
  Receive Date: 20140401
  Receipt Date: 20140401
  Transmission Date: 20141212
  Serious: Yes (Death, Other)
  Sender: FDA-Public Use
  Company Number: US-JNJFOC-20140313056

PATIENT
  Sex: 0

DRUGS (5)
  1. LEVOFLOXACIN [Suspect]
     Indication: GENITOURINARY TRACT INFECTION
     Route: 065
  2. LEVOFLOXACIN [Suspect]
     Indication: UPPER RESPIRATORY TRACT INFECTION
     Route: 065
  3. LEVOFLOXACIN [Suspect]
     Indication: RESPIRATORY TRACT INFECTION
     Route: 065
  4. LEVOFLOXACIN [Suspect]
     Indication: PNEUMONIA
     Route: 065
  5. LEVOFLOXACIN [Suspect]
     Indication: CHRONIC OBSTRUCTIVE PULMONARY DISEASE
     Route: 065

REACTIONS (2)
  - Death [Fatal]
  - Arrhythmia [Unknown]
